FAERS Safety Report 6965870-1 (Version None)
Quarter: 2010Q3

REPORT INFORMATION
  Report Type: 
  Country: None (occurrence: None)
  Receive Date: 20100903
  Receipt Date: 20100826
  Transmission Date: 20110219
  Serious: No
  Sender: FDA-Public Use
  Company Number: US-US-EMD SERONO, INC.-7013386

PATIENT
  Sex: Female
  Weight: 61 kg

DRUGS (7)
  1. REBIF [Suspect]
     Indication: MULTIPLE SCLEROSIS
     Route: 058
     Dates: start: 20100802, end: 20100801
  2. REBIF [Suspect]
     Route: 058
     Dates: start: 20100801, end: 20100801
  3. REBIF [Suspect]
     Route: 058
     Dates: start: 20100802
  4. NEURONTIN [Concomitant]
     Indication: TRIGEMINAL NEURALGIA
  5. MELATONIN [Concomitant]
  6. OXYCODONE HCL AND ACETAMINOPHEN [Concomitant]
     Indication: TRIGEMINAL NEURALGIA
  7. ACETAMINOPHEN [Concomitant]
     Indication: TRIGEMINAL NEURALGIA

REACTIONS (10)
  - DEPRESSED MOOD [None]
  - DIZZINESS [None]
  - EYE PAIN [None]
  - INJECTION SITE REACTION [None]
  - INSOMNIA [None]
  - NAUSEA [None]
  - OPTIC NERVE INJURY [None]
  - PAIN [None]
  - PALPITATIONS [None]
  - RASH [None]
